FAERS Safety Report 15384135 (Version 1)
Quarter: 2018Q3

REPORT INFORMATION
  Report Type: Spontaneous
  Country: DE (occurrence: DE)
  Receive Date: 20180914
  Receipt Date: 20180914
  Transmission Date: 20181010
  Serious: Yes (Other)
  Sender: FDA-Public Use
  Company Number: DE-MERCK KGAA-2054915

PATIENT
  Sex: Female

DRUGS (3)
  1. NOVOTHYROX [Suspect]
     Active Substance: LEVOTHYROXINE SODIUM
     Indication: AUTOIMMUNE THYROIDITIS
  2. NOVOTHYROX [Suspect]
     Active Substance: LEVOTHYROXINE SODIUM
     Dates: start: 2018
  3. CHLORMADINONE [Suspect]
     Active Substance: CHLORMADINONE

REACTIONS (10)
  - Ovulation disorder [None]
  - Abdominal pain lower [None]
  - Nausea [Not Recovered/Not Resolved]
  - Maternal exposure during pregnancy [Recovered/Resolved]
  - Insulin resistance [None]
  - Skin disorder [None]
  - Insomnia [None]
  - Overdose [None]
  - Abortion early [Recovered/Resolved]
  - Metrorrhagia [None]

NARRATIVE: CASE EVENT DATE: 2018
